FAERS Safety Report 21451674 (Version 1)
Quarter: 2022Q4

REPORT INFORMATION
  Report Type: Spontaneous
  Country: US (occurrence: None)
  Receive Date: 20221012
  Receipt Date: 20221012
  Transmission Date: 20230113
  Serious: No
  Sender: FDA-Public Use
  Company Number: None

PATIENT
  Age: 40 Year
  Sex: Female

DRUGS (5)
  1. HUMIRA [Suspect]
     Active Substance: ADALIMUMAB
     Indication: Spinal osteoarthritis
     Dosage: FREQUENCY : EVERY OTHER WEEK;?
     Route: 058
     Dates: start: 20220909, end: 20220909
  2. EMGALITY [Concomitant]
     Active Substance: GALCANEZUMAB-GNLM
  3. ALBUTEROL [Concomitant]
     Active Substance: ALBUTEROL
  4. ONDANSETRON [Concomitant]
     Active Substance: ONDANSETRON
  5. PROMETHAZINE [Concomitant]
     Active Substance: PROMETHAZINE HYDROCHLORIDE

REACTIONS (4)
  - Asthenia [None]
  - Vomiting [None]
  - Dyspnoea [None]
  - Therapy cessation [None]

NARRATIVE: CASE EVENT DATE: 20220909
